FAERS Safety Report 20322823 (Version 2)
Quarter: 2022Q1

REPORT INFORMATION
  Report Type: Report from Study
  Country: CN (occurrence: CN)
  Receive Date: 20220111
  Receipt Date: 20220324
  Transmission Date: 20220423
  Serious: Yes (Hospitalization)
  Sender: FDA-Public Use
  Company Number: CN-ELI_LILLY_AND_COMPANY-CN202011008686

PATIENT
  Age: 65 Year
  Sex: Male
  Weight: 45 kg

DRUGS (13)
  1. HUMALOG [Suspect]
     Active Substance: INSULIN LISPRO
     Indication: Type 2 diabetes mellitus
     Dosage: 7 U, EACH MORNING
     Route: 058
     Dates: start: 2014
  2. HUMALOG [Suspect]
     Active Substance: INSULIN LISPRO
     Dosage: 5 U, EACH EVENING
     Route: 058
     Dates: start: 2014
  3. HUMALOG [Suspect]
     Active Substance: INSULIN LISPRO
     Dosage: 13 U, DAILY (13 UNITS IN TOTAL FOR MORNING, NOON AND EVENING)
     Route: 058
  4. HUMALOG [Suspect]
     Active Substance: INSULIN LISPRO
     Indication: Type 2 diabetes mellitus
     Dosage: 5 U, EACH MORNING
     Route: 058
     Dates: start: 201912
  5. HUMALOG [Suspect]
     Active Substance: INSULIN LISPRO
     Dosage: 4 U, DAILY (NOON)
     Route: 058
     Dates: start: 201912
  6. HUMALOG [Suspect]
     Active Substance: INSULIN LISPRO
     Dosage: 3 U, EACH EVENING
     Route: 058
     Dates: start: 201912
  7. HUMALOG [Suspect]
     Active Substance: INSULIN LISPRO
     Dosage: 4 U, EACH MORNING
     Route: 058
     Dates: start: 202012
  8. HUMALOG [Suspect]
     Active Substance: INSULIN LISPRO
     Dosage: 4 U, DAILY (MIDDAY)
     Route: 058
     Dates: start: 202012
  9. HUMALOG [Suspect]
     Active Substance: INSULIN LISPRO
     Dosage: 3 U, EACH EVENING (NIGHT)
     Route: 058
     Dates: start: 202012
  10. HUMALOG [Suspect]
     Active Substance: INSULIN LISPRO
     Dosage: 4 U, TID (2-4 UNITS IN THREE TIMES IN A DAY OR 5 UNITS IN ONE TIME)
     Route: 058
     Dates: start: 202012
  11. HUMALOG [Suspect]
     Active Substance: INSULIN LISPRO
     Dosage: 3 U, EACH MORNING
     Route: 058
  12. HUMALOG [Suspect]
     Active Substance: INSULIN LISPRO
     Dosage: 2 U, DAILY (NOON)
     Route: 058
  13. HUMALOG [Suspect]
     Active Substance: INSULIN LISPRO
     Dosage: 2 U, DAILY (NOON)
     Route: 058

REACTIONS (18)
  - Gastric ulcer [Recovering/Resolving]
  - Intestinal polyp [Recovering/Resolving]
  - Gastrointestinal inflammation [Recovering/Resolving]
  - Weight decreased [Unknown]
  - Abdominal discomfort [Unknown]
  - Renal disorder [Unknown]
  - Respiratory disorder [Unknown]
  - Deafness [Unknown]
  - Renal failure [Unknown]
  - Peripheral swelling [Unknown]
  - Dyspnoea [Unknown]
  - Asthenia [Not Recovered/Not Resolved]
  - Body height decreased [Unknown]
  - Hypoglycaemia [Recovering/Resolving]
  - Hypoglycaemia [Unknown]
  - Lung disorder [Unknown]
  - Cardiac disorder [Unknown]
  - Renal disorder [Unknown]
